FAERS Safety Report 9257133 (Version 4)
Quarter: 2013Q3

REPORT INFORMATION
  Report Type: Spontaneous
  Country: FR (occurrence: None)
  Receive Date: 20130424
  Receipt Date: 20130805
  Transmission Date: 20140515
  Serious: Yes (Death, Hospitalization, Other)
  Sender: FDA-Public Use
  Company Number: SYM-2013-02838

PATIENT
  Age: 81 Year
  Sex: Female

DRUGS (8)
  1. FLAGYL [Suspect]
     Indication: ABSCESS INTESTINAL
     Dosage: 500 MG, 3 IN 1 D, ORAL
     Route: 048
     Dates: start: 20120224, end: 20120406
  2. TAVANIC [Suspect]
     Indication: ABSCESS INTESTINAL
     Route: 048
     Dates: start: 20120224, end: 20120406
  3. ULCAR [Suspect]
     Indication: PRODUCT USED FOR UNKNOWN INDICATION
     Route: 048
  4. MIANSERINE [Suspect]
     Indication: PRODUCT USED FOR UNKNOWN INDICATION
     Route: 048
     Dates: end: 20120418
  5. ALPRAZOLAM (ALPRAZOLAM) (ALPRAZOLAM) [Suspect]
     Indication: PRODUCT USED FOR UNKNOWN INDICATION
     Route: 048
  6. SOTALOL [Suspect]
     Indication: PRODUCT USED FOR UNKNOWN INDICATION
     Route: 048
  7. NATISPRAY (GLYCERYL TRINITRATE) (GLYCERYL TRINITRATE) [Concomitant]
  8. MOTILIUM (DOMPERIDONE) (DOMPERIDONE) [Concomitant]

REACTIONS (10)
  - Encephalopathy [None]
  - Speech disorder [None]
  - Blindness cortical [None]
  - Confusional state [None]
  - Abnormal behaviour [None]
  - Diet refusal [None]
  - Disorientation [None]
  - Axonal neuropathy [None]
  - Gastrointestinal perforation [None]
  - Metabolic encephalopathy [None]
